FAERS Safety Report 12158510 (Version 1)
Quarter: 2016Q1

REPORT INFORMATION
  Report Type: Spontaneous
  Country: US (occurrence: None)
  Receive Date: 20160307
  Receipt Date: 20160307
  Transmission Date: 20160526
  Serious: Yes (Other)
  Sender: FDA-Public Use
  Company Number: None

PATIENT
  Age: 43 Year
  Sex: Female

DRUGS (1)
  1. LUPRON DEPOT [Suspect]
     Active Substance: LEUPROLIDE ACETATE
     Indication: ENDOMETRIOSIS
     Dosage: Q3MONTHS??INJECTABLE
     Route: 030
     Dates: start: 20151205

REACTIONS (2)
  - Insomnia [None]
  - Night sweats [None]

NARRATIVE: CASE EVENT DATE: 20151205
